FAERS Safety Report 13720537 (Version 1)
Quarter: 2017Q3

REPORT INFORMATION
  Report Type: Spontaneous
  Country: FR (occurrence: FR)
  Receive Date: 20170706
  Receipt Date: 20170706
  Transmission Date: 20171127
  Serious: Yes (Hospitalization)
  Sender: FDA-Public Use
  Company Number: FR-UCBSA-2017026106

PATIENT
  Age: 5 Year
  Sex: Male

DRUGS (8)
  1. CANNABIDIOL [Suspect]
     Active Substance: CANNABIDIOL
     Dosage: 7.5 MG/KG/DAY
     Dates: start: 20170619, end: 20170619
  2. MIDAZOLAM [Concomitant]
     Active Substance: MIDAZOLAM HYDROCHLORIDE
     Indication: STATUS EPILEPTICUS
     Dosage: UNK
  3. VIMPAT [Suspect]
     Active Substance: LACOSAMIDE
     Indication: OFF LABEL USE
  4. DEPAKINE [Suspect]
     Active Substance: VALPROATE SODIUM
     Dosage: 30 MG/KG/DAY
     Dates: start: 20170615, end: 20170619
  5. DEPAKINE [Suspect]
     Active Substance: VALPROATE SODIUM
     Indication: STATUS EPILEPTICUS
     Dosage: 15 MG/KG/DAY
     Route: 042
     Dates: start: 20170614, end: 201706
  6. CANNABIDIOL [Suspect]
     Active Substance: CANNABIDIOL
     Indication: STATUS EPILEPTICUS
     Dosage: 5 MG/KG
     Dates: start: 20170617, end: 201706
  7. VIMPAT [Suspect]
     Active Substance: LACOSAMIDE
     Indication: STATUS EPILEPTICUS
     Dosage: 4 MG/KG/DAY
     Dates: start: 20170616, end: 20170619
  8. KETAMINE [Concomitant]
     Active Substance: KETAMINE
     Indication: STATUS EPILEPTICUS
     Dosage: UNK

REACTIONS (3)
  - Off label use [Unknown]
  - Metabolic acidosis [Recovering/Resolving]
  - Hyperammonaemia [Recovering/Resolving]

NARRATIVE: CASE EVENT DATE: 20170616
